FAERS Safety Report 9501601 (Version 1)
Quarter: 2013Q1

REPORT INFORMATION
  Report Type: Spontaneous
  Country: US (occurrence: None)
  Receive Date: 20130107
  Receipt Date: 20130107
  Transmission Date: 20140127
  Serious: Yes (Other)
  Sender: FDA-Public Use
  Company Number: PHEH2012US020976

PATIENT
  Sex: Female

DRUGS (2)
  1. GILENYA [Suspect]
     Indication: MULTIPLE SCLEROSIS
     Route: 048
     Dates: start: 201206
  2. DILANTIN (PHENYTOIN SODIUM) [Concomitant]

REACTIONS (6)
  - Weight decreased [None]
  - Bone disorder [None]
  - Lacrimation increased [None]
  - Oropharyngeal pain [None]
  - Nausea [None]
  - Vision blurred [None]
